FAERS Safety Report 9906201 (Version 1)
Quarter: 2014Q1

REPORT INFORMATION
  Report Type: Spontaneous
  Country: GB (occurrence: GB)
  Receive Date: 20140218
  Receipt Date: 20140218
  Transmission Date: 20141002
  Serious: Yes (Other)
  Sender: FDA-Public Use
  Company Number: GB-GLAXOSMITHKLINE-B0969218A

PATIENT
  Age: 76 Year
  Sex: Male
  Weight: 67 kg

DRUGS (5)
  1. ARZERRA [Suspect]
     Indication: CHRONIC LYMPHOCYTIC LEUKAEMIA REFRACTORY
     Route: 042
     Dates: start: 20140131, end: 20140131
  2. ACICLOVIR [Concomitant]
  3. METHYLPREDNISOLONE [Concomitant]
     Route: 042
  4. CHLORPHENAMINE [Concomitant]
     Route: 042
  5. PARACETAMOL [Concomitant]
     Route: 042

REACTIONS (4)
  - Hypotension [Recovered/Resolved]
  - Tachycardia [Unknown]
  - Heart rate irregular [Unknown]
  - Atrial fibrillation [Unknown]
